FAERS Safety Report 24194745 (Version 1)
Quarter: 2024Q3

REPORT INFORMATION
  Report Type: Spontaneous
  Country: IT (occurrence: IT)
  Receive Date: 20240809
  Receipt Date: 20240809
  Transmission Date: 20241017
  Serious: Yes (Disabling)
  Sender: SK LIFE SCIENCE
  Company Number: US-SK LIFE SCIENCE, INC-SKPVG-2024-001752

PATIENT

DRUGS (10)
  1. XCOPRI [Suspect]
     Active Substance: CENOBAMATE
     Indication: Seizure
     Dosage: UNK
     Route: 065
  2. XCOPRI [Suspect]
     Active Substance: CENOBAMATE
     Dosage: 12-WEEK FOLLOW-UP
     Route: 065
  3. XCOPRI [Suspect]
     Active Substance: CENOBAMATE
     Dosage: 12.5 MILLIGRAM, DAY
     Route: 065
  4. XCOPRI [Suspect]
     Active Substance: CENOBAMATE
     Dosage: 150 MILLIGRAM, DAY
     Route: 065
  5. LAMOTRIGINE [Suspect]
     Active Substance: LAMOTRIGINE
     Indication: Seizure
     Dosage: 175 MILLIGRAM/DIE
     Route: 065
  6. LAMOTRIGINE [Suspect]
     Active Substance: LAMOTRIGINE
     Dosage: 150 MILLIGRAM/DIE
     Route: 065
  7. CLOBAZAM [Suspect]
     Active Substance: CLOBAZAM
     Indication: Seizure
     Dosage: 30 MILLIGRAM/DIE
     Route: 065
  8. CLOBAZAM [Suspect]
     Active Substance: CLOBAZAM
     Dosage: 20 MILLIGRAM/DIE
     Route: 065
  9. VALPROIC ACID [Suspect]
     Active Substance: VALPROIC ACID
     Indication: Seizure
     Dosage: 1800 MILLIGRAM, DAY
     Route: 065
  10. VALPROIC ACID [Suspect]
     Active Substance: VALPROIC ACID
     Dosage: 600 MILLIGRAM, DAY
     Route: 065

REACTIONS (9)
  - Bedridden [Recovering/Resolving]
  - Disorientation [Recovering/Resolving]
  - Brain fog [Recovering/Resolving]
  - Ammonia increased [Unknown]
  - Seizure [Unknown]
  - Drug interaction [Unknown]
  - Drug interaction [Unknown]
  - Somnolence [Recovering/Resolving]
  - Gait disturbance [Recovering/Resolving]
